FAERS Safety Report 12940256 (Version 2)
Quarter: 2016Q4

REPORT INFORMATION
  Report Type: Spontaneous
  Country: SE (occurrence: SE)
  Receive Date: 20161114
  Receipt Date: 20161128
  Transmission Date: 20170207
  Serious: Yes (Hospitalization, Disabling, Other)
  Sender: FDA-Public Use
  Company Number: SE-ABBVIE-16P-150-1780777-00

PATIENT
  Age: 79 Year
  Sex: Male

DRUGS (2)
  1. ERGENYL RETARD [Suspect]
     Active Substance: VALPROIC ACID
     Indication: EPILEPSY
     Dosage: TABLET, EXTENDED RELEASE
     Route: 048
     Dates: start: 199412
  2. ERGENYL RETARD [Suspect]
     Active Substance: VALPROIC ACID
     Dosage: TABLET, EXTENDED RELEASE
     Route: 048
     Dates: start: 201503, end: 201507

REACTIONS (4)
  - Spinal compression fracture [Unknown]
  - Osteoporosis [Unknown]
  - Cerebral atrophy [Unknown]
  - Parkinsonism [Unknown]

NARRATIVE: CASE EVENT DATE: 2007
